FAERS Safety Report 17094241 (Version 2)
Quarter: 2019Q4

REPORT INFORMATION
  Report Type: Spontaneous
  Country: JP (occurrence: JP)
  Receive Date: 20191129
  Receipt Date: 20191223
  Transmission Date: 20200122
  Serious: Yes (Death)
  Sender: FDA-Public Use
  Company Number: JP-NOVOPROD-698646

PATIENT
  Age: 54 Year
  Sex: Male
  Weight: 88.5 kg

DRUGS (11)
  1. CORTRIL [Concomitant]
     Active Substance: HYDROCORTISONE
     Dosage: 15 MG, QD
     Route: 048
  2. MINIRINMELT [Concomitant]
     Active Substance: DESMOPRESSIN ACETATE
     Dosage: 60MCG/DAY
     Route: 048
  3. SUREPOST [Concomitant]
     Active Substance: REPAGLINIDE
     Dosage: UNK
  4. TAKELDA [Concomitant]
     Active Substance: ASPIRIN\LANSOPRAZOLE
     Dosage: UNK
     Route: 048
  5. OLMETEC [Concomitant]
     Active Substance: OLMESARTAN MEDOXOMIL
     Dosage: UNK
     Route: 048
  6. CRESTOR [Concomitant]
     Active Substance: ROSUVASTATIN CALCIUM
     Dosage: 2.5 MG, QD
     Route: 048
  7. FORTEO [Concomitant]
     Active Substance: TERIPARATIDE
     Dosage: 1200MCG/DAY
     Route: 058
  8. VICTOZA [Suspect]
     Active Substance: LIRAGLUTIDE
     Indication: TYPE 2 DIABETES MELLITUS
     Dosage: 0.9 MG, QD
     Route: 058
     Dates: start: 20191029
  9. RIFXIMA [Concomitant]
     Active Substance: RIFAXIMIN
     Dosage: 1200 MG, QD
     Route: 048
  10. HUMALOG [Concomitant]
     Active Substance: INSULIN LISPRO
     Dosage: UNK
  11. THYRADIN [Concomitant]
     Active Substance: LEVOTHYROXINE
     Dosage: 125MCG/DAY
     Route: 048

REACTIONS (7)
  - Diarrhoea haemorrhagic [Unknown]
  - Septic shock [Fatal]
  - Vomiting [Unknown]
  - Nausea [Unknown]
  - Abdominal distension [Unknown]
  - Diarrhoea [Unknown]
  - Abdominal pain [Unknown]

NARRATIVE: CASE EVENT DATE: 20191102
